FAERS Safety Report 23471865 (Version 3)
Quarter: 2025Q2

REPORT INFORMATION
  Report Type: Spontaneous
  Country: PA (occurrence: PA)
  Receive Date: 20240202
  Receipt Date: 20250617
  Transmission Date: 20250716
  Serious: Yes (Other)
  Sender: SANDOZ
  Company Number: PA-002147023-NVSC2022PA089585

PATIENT
  Age: 64 Year
  Sex: Female

DRUGS (8)
  1. ANASTROZOLE [Suspect]
     Active Substance: ANASTROZOLE
     Indication: Breast cancer metastatic
     Dosage: 1 MG, QD, START DATE: ??-MAR-2021
     Route: 048
  2. ANASTROZOLE [Suspect]
     Active Substance: ANASTROZOLE
     Indication: Metastases to pelvis
  3. KISQALI [Suspect]
     Active Substance: RIBOCICLIB SUCCINATE
     Indication: Metastases to pelvis
     Dosage: 3 DOSAGE FORM, QD (TABLET), START DATE: ??-???-2022
     Route: 048
  4. KISQALI [Suspect]
     Active Substance: RIBOCICLIB SUCCINATE
     Dosage: 400 MG (2 UNITS), QD, START DATE: ??-OCT-2024
     Route: 048
  5. KISQALI [Suspect]
     Active Substance: RIBOCICLIB SUCCINATE
     Indication: Breast cancer metastatic
     Dosage: 600 MG, QD, START DATE: 26-MAR-2022
     Route: 048
  6. KISQALI [Suspect]
     Active Substance: RIBOCICLIB SUCCINATE
     Dosage: 600 MG, QD, START DATE: ??-MAR-2021, STOP DATE: ??-OCT-2024
     Route: 048
  7. ZOLEDRONIC ACID [Suspect]
     Active Substance: ZOLEDRONIC ACID
     Indication: Bone disorder
     Dosage: UNK, Q3MO (JAR), START DATE: ??-MAR-2021
     Route: 042
  8. ARIMIDEX [Concomitant]
     Active Substance: ANASTROZOLE
     Indication: Product used for unknown indication
     Dosage: QD
     Route: 065

REACTIONS (20)
  - Discomfort [Unknown]
  - Pain in extremity [Unknown]
  - Metastases to pelvis [Unknown]
  - Fatigue [Recovering/Resolving]
  - Arthralgia [Recovering/Resolving]
  - Stress [Recovering/Resolving]
  - Depressed mood [Unknown]
  - Blood pressure abnormal [Unknown]
  - Blood creatinine decreased [Unknown]
  - Haemoglobin increased [Unknown]
  - Decreased immune responsiveness [Recovering/Resolving]
  - Platelet count decreased [Unknown]
  - Haemoglobin decreased [Unknown]
  - Malaise [Unknown]
  - Influenza [Unknown]
  - Dizziness [Unknown]
  - Pyrexia [Unknown]
  - Blood creatinine increased [Not Recovered/Not Resolved]
  - Memory impairment [Not Recovered/Not Resolved]
  - Off label use [Unknown]

NARRATIVE: CASE EVENT DATE: 20210301
